FAERS Safety Report 5593048-5 (Version None)
Quarter: 2007Q4

REPORT INFORMATION
  Report Type: 
  Country: None (occurrence: None)
  Receive Date: 20071217
  Receipt Date: 20071102
  Transmission Date: 20080405
  Serious: No
  Sender: FDA-Public Use
  Company Number: BDI-010498

PATIENT
  Age: 54 Year
  Sex: Female
  Weight: 159 kg

DRUGS (2)
  1. MULTIHANCE [Suspect]
     Indication: MIGRAINE
     Dosage: 20 ML ONCE IV
     Route: 042
     Dates: start: 20071102, end: 20071102
  2. MULTIHANCE [Suspect]
     Indication: NUCLEAR MAGNETIC RESONANCE IMAGING BRAIN
     Dosage: 20 ML ONCE IV
     Route: 042
     Dates: start: 20071102, end: 20071102

REACTIONS (2)
  - NAUSEA [None]
  - VOMITING [None]
